FAERS Safety Report 5427839-8 (Version None)
Quarter: 2007Q3

REPORT INFORMATION
  Report Type: 
  Country: None (occurrence: None)
  Receive Date: 20070828
  Receipt Date: 20070820
  Transmission Date: 20080115
  Serious: Yes (Other)
  Sender: FDA-Public Use
  Company Number: US-TYCO HEALTHCARE/MALLINCKRODT-T200700960

PATIENT

DRUGS (1)
  1. OPTIRAY PBP [Suspect]
     Indication: COMPUTERISED TOMOGRAM
     Dosage: 100 ML, SINGLE
     Route: 042
     Dates: start: 20070816, end: 20070816

REACTIONS (3)
  - ANXIETY [None]
  - FACE OEDEMA [None]
  - HYPERSENSITIVITY [None]
